FAERS Safety Report 9354034 (Version 1)
Quarter: 2013Q2

REPORT INFORMATION
  Report Type: Spontaneous
  Country: US (occurrence: US)
  Receive Date: 20130618
  Receipt Date: 20130618
  Transmission Date: 20140414
  Serious: No
  Sender: FDA-Public Use
  Company Number: US-BAYER-2013-072443

PATIENT
  Age: 29 Year
  Sex: Female

DRUGS (1)
  1. MIRENA [Suspect]
     Indication: CONTRACEPTION
     Dosage: 20 MCG/24HR, CONT
     Route: 015

REACTIONS (9)
  - Palpitations [None]
  - Tinnitus [None]
  - Hypoaesthesia [None]
  - Weight increased [None]
  - Mood swings [None]
  - Dizziness [None]
  - Fatigue [None]
  - Migraine [None]
  - Acne [None]
